FAERS Safety Report 5812446-5 (Version None)
Quarter: 2008Q3

REPORT INFORMATION
  Report Type: 
  Country: None (occurrence: None)
  Receive Date: 20080717
  Receipt Date: 20080716
  Transmission Date: 20090109
  Serious: Yes (Other)
  Sender: FDA-Public Use
  Company Number: US-RB-002076-08

PATIENT
  Sex: Female
  Weight: 59.85 kg

DRUGS (3)
  1. SUBUTEX [Suspect]
     Route: 060
     Dates: start: 20080601, end: 20080713
  2. SUBOXONE [Suspect]
     Dosage: UNKNOWN DOSE.
     Route: 060
     Dates: end: 20080601
  3. VITAMIN TAB [Concomitant]
     Indication: PREGNANCY
     Dosage: UNKNOWN DOSING INFORMATION.

REACTIONS (3)
  - ABORTION SPONTANEOUS [None]
  - DRUG EXPOSURE DURING PREGNANCY [None]
  - VAGINAL HAEMORRHAGE [None]
